FAERS Safety Report 23139984 (Version 1)
Quarter: 2023Q4

REPORT INFORMATION
  Report Type: Spontaneous
  Country: US (occurrence: US)
  Receive Date: 20231102
  Receipt Date: 20231102
  Transmission Date: 20240110
  Serious: No
  Sender: FDA-Public Use
  Company Number: US-TAKEDA-2023TUS104418

PATIENT

DRUGS (10)
  1. LIVTENCITY [Suspect]
     Active Substance: MARIBAVIR
     Indication: Product used for unknown indication
     Dosage: UNK
     Route: 065
  2. COMIRNATY (TOZINAMERAN) [Suspect]
     Active Substance: TOZINAMERAN
     Indication: COVID-19 immunisation
     Dosage: UNK
     Route: 065
     Dates: start: 20231013
  3. PFIZER-BIONTECH COVID-19 VACCINE [Suspect]
     Active Substance: TOZINAMERAN
     Indication: Product used for unknown indication
     Dosage: UNK
     Route: 065
  4. VITAMIN C [Concomitant]
     Active Substance: ASCORBIC ACID
     Indication: Liver transplant
     Dosage: 500 INTERNATIONAL UNIT, QD
     Route: 065
  5. ZINC [Concomitant]
     Active Substance: PYRITHIONE ZINC\ZINC\ZINC CHLORIDE
     Indication: Liver transplant
     Dosage: 220 MILLIGRAM, QD
     Route: 065
  6. Thera tabs m [Concomitant]
     Indication: Liver transplant
     Dosage: 1 DOSAGE FORM, QD
     Route: 065
  7. TACROLIMUS [Concomitant]
     Active Substance: TACROLIMUS
     Indication: Liver transplant rejection
     Dosage: 1 MILLIGRAM, QD
     Route: 065
  8. TACROLIMUS [Concomitant]
     Active Substance: TACROLIMUS
     Dosage: 0.5 MILLIGRAM, QD
     Route: 065
  9. LEVOTHYROXINE [Concomitant]
     Active Substance: LEVOTHYROXINE
     Indication: Autoimmune thyroiditis
     Dosage: 200 MILLIGRAM, QD
     Route: 065
  10. FAMOTIDINE [Concomitant]
     Active Substance: FAMOTIDINE
     Indication: Gastrointestinal disorder
     Dosage: UNK UNK, QD
     Route: 065

REACTIONS (19)
  - Dizziness [Unknown]
  - Pain in extremity [Unknown]
  - Movement disorder [Unknown]
  - Musculoskeletal stiffness [Unknown]
  - Insomnia [Unknown]
  - Illness [Unknown]
  - Chills [Unknown]
  - Tremor [Unknown]
  - Malaise [Unknown]
  - Erythema [Unknown]
  - Peripheral swelling [Unknown]
  - Oedema [Unknown]
  - Weight bearing difficulty [Unknown]
  - Pain [Unknown]
  - Feeling abnormal [Unknown]
  - Joint swelling [Unknown]
  - Limb discomfort [Unknown]
  - Fatigue [Unknown]
  - Nausea [Unknown]
